FAERS Safety Report 8521538-1 (Version None)
Quarter: 2012Q3

REPORT INFORMATION
  Report Type: 
  Country: None (occurrence: None)
  Receive Date: 20120719
  Receipt Date: 20120712
  Transmission Date: 20120928
  Serious: Yes (Other)
  Sender: FDA-Public Use
  Company Number: PHEH2012US013002

PATIENT
  Sex: Male
  Weight: 89 kg

DRUGS (13)
  1. CALCIUM+D [Concomitant]
     Route: 048
  2. AFINITOR [Suspect]
     Indication: RENAL CELL CARCINOMA
     Dosage: 10 MG, DAILY
     Route: 048
     Dates: start: 20120608, end: 20120618
  3. MICARDIS HCT [Concomitant]
     Dosage: 1 DF, UNK
     Route: 048
  4. SYNTHROID [Concomitant]
  5. TENORMIN [Concomitant]
     Dosage: 50 MG, UNK
     Route: 048
  6. TYLENOL [Concomitant]
     Dosage: 325 MG, UNK
     Route: 048
  7. LEVOTHYROXINE SODIUM [Concomitant]
     Dosage: 25 UG, UNK
     Route: 048
  8. MULTI-VITAMINS [Concomitant]
     Route: 048
  9. ASPIRIN [Concomitant]
     Dosage: 81 MG, UNK
     Route: 048
  10. HYDRODIURIL [Concomitant]
     Dosage: 25 MG, UNK
     Route: 048
  11. KAYEXALATE [Concomitant]
  12. IMODIUM [Concomitant]
  13. BETAMETHASONE DIPROPIONATE [Concomitant]
     Dosage: 0.05 %, UNK

REACTIONS (6)
  - DYSGEUSIA [None]
  - BLOOD CREATININE INCREASED [None]
  - BONE MARROW FAILURE [None]
  - WHITE BLOOD CELL COUNT DECREASED [None]
  - THROMBOCYTOPENIA [None]
  - VITAMIN B12 DEFICIENCY [None]
